FAERS Safety Report 18711161 (Version 1)
Quarter: 2021Q1

REPORT INFORMATION
  Report Type: Spontaneous
  Country: US (occurrence: US)
  Receive Date: 20210106
  Receipt Date: 20210106
  Transmission Date: 20210419
  Serious: Yes (Other)
  Sender: FDA-Public Use
  Company Number: None

PATIENT
  Age: 65 Year
  Sex: Male
  Weight: 96.3 kg

DRUGS (13)
  1. COLACE [Concomitant]
     Active Substance: DOCUSATE SODIUM
  2. GLIPIZIDE XL 2.5MG [Concomitant]
  3. AMLODIPINE [Concomitant]
     Active Substance: AMLODIPINE BESYLATE
  4. FLEXERIL [Concomitant]
     Active Substance: CYCLOBENZAPRINE HYDROCHLORIDE
  5. CASIRIVIMAB/IMDEVIMAB [Suspect]
     Active Substance: CASIRIVIMAB\IMDEVIMAB
     Dosage: ?          OTHER FREQUENCY:ONCE;?
     Dates: start: 20201230, end: 20201230
  6. ASPRIN 81MG [Concomitant]
  7. XANAX [Concomitant]
     Active Substance: ALPRAZOLAM
  8. METFORMIN [Concomitant]
     Active Substance: METFORMIN HYDROCHLORIDE
  9. ATROVASTATIN 40MG [Concomitant]
  10. MELATONIN 10MG [Concomitant]
  11. SOTALOL 80MG [Concomitant]
     Active Substance: SOTALOL
  12. FIBER GUMMIES [Concomitant]
     Active Substance: DIETARY SUPPLEMENT
  13. INDOMETHACIN 25MG [Concomitant]

REACTIONS (2)
  - Body temperature increased [None]
  - Chills [None]

NARRATIVE: CASE EVENT DATE: 20201230
